FAERS Safety Report 16051114 (Version 1)
Quarter: 2019Q1

REPORT INFORMATION
  Report Type: Spontaneous
  Country: GB (occurrence: GB)
  Receive Date: 20190308
  Receipt Date: 20190308
  Transmission Date: 20190418
  Serious: Yes (Death, Other)
  Sender: FDA-Public Use
  Company Number: PHHY2019GB051426

PATIENT

DRUGS (2)
  1. PAZOPANIB [Suspect]
     Active Substance: PAZOPANIB
     Indication: MALIGNANT MELANOMA
     Dosage: 800 MG, QD
     Route: 048
  2. PACLITAXEL. [Suspect]
     Active Substance: PACLITAXEL
     Indication: MALIGNANT MELANOMA
     Dosage: 65 MG/M2, (ON DAYS 1, 8, AND 15 OF EACH CYCLE UP TO SIX CYCLES)
     Route: 042

REACTIONS (3)
  - Intestinal perforation [Fatal]
  - Malignant melanoma [Unknown]
  - Malignant neoplasm progression [Unknown]
